FAERS Safety Report 9238589 (Version 1)
Quarter: 2013Q2

REPORT INFORMATION
  Report Type: Spontaneous
  Country: US (occurrence: US)
  Receive Date: 20130418
  Receipt Date: 20130418
  Transmission Date: 20140414
  Serious: Yes (Other)
  Sender: FDA-Public Use
  Company Number: US-SANOFI-AVENTIS-2013SA039331

PATIENT
  Age: 69 Year
  Sex: Female
  Weight: 63.5 kg

DRUGS (15)
  1. LANTUS SOLOSTAR [Suspect]
     Indication: DIABETES MELLITUS
     Dosage: DOSE:10 UNIT(S)
     Route: 051
     Dates: start: 201211
  2. SOLOSTAR [Suspect]
     Indication: DIABETES MELLITUS
     Dates: start: 201211
  3. LEVOXYL [Concomitant]
  4. ENALAPRIL [Concomitant]
     Dosage: 10/25
  5. METFORMIN HYDROCHLORIDE/PIOGLITAZONE HYDROCHLORIDE [Concomitant]
     Dosage: 15/850
  6. ATORVASTATIN [Concomitant]
  7. FENOFIBRATE [Concomitant]
  8. GLIMEPIRIDE [Concomitant]
  9. LUMIGAN [Concomitant]
     Dosage: 1 DROP IN BOTH EYES
  10. ASPIRIN [Concomitant]
  11. CALCIUM W/MAGNESIUM/VITAMIN D [Concomitant]
  12. VITAMIN D [Concomitant]
  13. MULTIVITAMINS [Concomitant]
  14. PAROXETINE HYDROCHLORIDE [Concomitant]
  15. OMEPRAZOLE [Concomitant]
     Indication: GASTRIC DISORDER

REACTIONS (1)
  - Staphylococcal infection [Not Recovered/Not Resolved]
